FAERS Safety Report 8482845-4 (Version None)
Quarter: 2012Q2

REPORT INFORMATION
  Report Type: 
  Country: None (occurrence: None)
  Receive Date: 20120625
  Receipt Date: 20120613
  Transmission Date: 20120825
  Serious: Yes (Hospitalization)
  Sender: FDA-Public Use
  Company Number: 2012AP001832

PATIENT
  Age: 32 Year
  Sex: Female

DRUGS (2)
  1. OLANZAPINE [Suspect]
     Indication: PRODUCT USED FOR UNKNOWN INDICATION
  2. DEPAKOTE [Suspect]
     Indication: PRODUCT USED FOR UNKNOWN INDICATION
     Dosage: 50 TAB

REACTIONS (13)
  - HYPOKALAEMIA [None]
  - TOXICITY TO VARIOUS AGENTS [None]
  - BLOOD PRESSURE DIASTOLIC DECREASED [None]
  - MULTIPLE DRUG OVERDOSE INTENTIONAL [None]
  - MIOSIS [None]
  - HYPERAMMONAEMIA [None]
  - AGITATION [None]
  - LACTIC ACIDOSIS [None]
  - SUICIDE ATTEMPT [None]
  - HAEMODIALYSIS [None]
  - TACHYCARDIA [None]
  - UNRESPONSIVE TO STIMULI [None]
  - CONFUSIONAL STATE [None]
